FAERS Safety Report 16498490 (Version 1)
Quarter: 2019Q2

REPORT INFORMATION
  Report Type: Spontaneous
  Country: US (occurrence: US)
  Receive Date: 20190629
  Receipt Date: 20190629
  Transmission Date: 20190711
  Serious: No
  Sender: FDA-Public Use
  Company Number: US-TEVA-2019-US-1063721

PATIENT
  Sex: Female

DRUGS (2)
  1. MICONAZOLE. [Suspect]
     Active Substance: MICONAZOLE
     Indication: BURNING SENSATION
     Dosage: FORM STRENGTH: 200
     Route: 067
     Dates: start: 20190610
  2. MICONAZOLE. [Suspect]
     Active Substance: MICONAZOLE
     Dosage: FORM STRENGTH: 200
     Route: 067
     Dates: start: 20190610

REACTIONS (1)
  - Intentional product misuse [Unknown]

NARRATIVE: CASE EVENT DATE: 20190610
